FAERS Safety Report 23552344 (Version 2)
Quarter: 2024Q1

REPORT INFORMATION
  Report Type: Spontaneous
  Country: GR (occurrence: GR)
  Receive Date: 20240222
  Receipt Date: 20240309
  Transmission Date: 20240409
  Serious: Yes (Other)
  Sender: FDA-Public Use
  Company Number: GR-JNJFOC-20240242758

PATIENT
  Sex: Male

DRUGS (3)
  1. RYBREVANT [Suspect]
     Active Substance: AMIVANTAMAB-VMJW
     Indication: Non-small cell lung cancer
     Dosage: WEEK 1 DAY 1: 350MG?WEEK 1 DAY 2: 1,050MG
     Route: 065
  2. PEMETREXED [Concomitant]
     Active Substance: PEMETREXED
  3. CARBOPLATIN [Concomitant]
     Active Substance: CARBOPLATIN

REACTIONS (3)
  - Skin toxicity [Recovering/Resolving]
  - Dermatitis acneiform [Unknown]
  - Infusion related reaction [Unknown]
